FAERS Safety Report 17736817 (Version 3)
Quarter: 2020Q2

REPORT INFORMATION
  Report Type: Spontaneous
  Country: US (occurrence: US)
  Receive Date: 20200502
  Receipt Date: 20200612
  Transmission Date: 20200714
  Serious: Yes (Hospitalization)
  Sender: FDA-Public Use
  Company Number: US-AUROBINDO-AUR-APL-2020-021011

PATIENT
  Age: 78 Year
  Sex: Female

DRUGS (10)
  1. GLIPIZIDE 5 MG [Suspect]
     Active Substance: GLIPIZIDE
     Indication: PRODUCT USED FOR UNKNOWN INDICATION
     Dosage: UNK
     Route: 065
     Dates: start: 20150127
  2. METFORMIN HYDROCHLORIDE EXTENDED-RELEASE TABLETS  500 MG [Suspect]
     Active Substance: METFORMIN HYDROCHLORIDE
     Dosage: UNK, 3 TIMES A DAY
     Route: 065
     Dates: start: 20130810
  3. METFORMIN HYDROCHLORIDE EXTENDED-RELEASE TABLETS  500 MG [Suspect]
     Active Substance: METFORMIN HYDROCHLORIDE
     Dosage: 2 DOSAGE FORM, DAILY
     Route: 065
     Dates: start: 20150429
  4. METFORMIN HYDROCHLORIDE EXTENDED-RELEASE TABLETS  500 MG [Suspect]
     Active Substance: METFORMIN HYDROCHLORIDE
     Indication: DIABETES MELLITUS
     Dosage: 2 DOSAGE FORM, TWO TIMES A DAY (INCREASED TO 500 MG)
     Route: 065
     Dates: start: 2001
  5. METFORMIN HYDROCHLORIDE EXTENDED-RELEASE TABLETS  500 MG [Suspect]
     Active Substance: METFORMIN HYDROCHLORIDE
     Dosage: 2 DOSAGE FORM, DAILY
     Route: 065
     Dates: start: 20200516
  6. PANTOPRAZOLE SODIUM. [Concomitant]
     Active Substance: PANTOPRAZOLE SODIUM
     Indication: GASTROOESOPHAGEAL REFLUX DISEASE
     Dosage: 40 MILLIGRAM, ONCE A DAY
     Route: 065
  7. SERTRALINE HCL [Concomitant]
     Active Substance: SERTRALINE HYDROCHLORIDE
     Indication: ANXIETY
     Dosage: 1 DOSAGE FORM, DAILY
     Route: 065
  8. METFORMIN HYDROCHLORIDE EXTENDED-RELEASE TABLETS  500 MG [Suspect]
     Active Substance: METFORMIN HYDROCHLORIDE
     Dosage: 3 DOSAGE FORM, DAILY
     Route: 065
  9. METFORMIN HYDROCHLORIDE EXTENDED-RELEASE TABLETS  500 MG [Suspect]
     Active Substance: METFORMIN HYDROCHLORIDE
     Dosage: 4 DOSAGE FORM, DAILY (TAKING TWO PILLS IN THE MORNING AND TWO)
     Route: 065
  10. GLIPIZIDE 5 MG [Suspect]
     Active Substance: GLIPIZIDE
     Dosage: UNK
     Route: 065
     Dates: start: 20150429

REACTIONS (30)
  - Constipation [Unknown]
  - Drooling [Unknown]
  - Tenderness [Unknown]
  - Myalgia [Unknown]
  - Fatigue [Not Recovered/Not Resolved]
  - Insomnia [Unknown]
  - Dysstasia [Unknown]
  - Weight decreased [Unknown]
  - Gastritis [Unknown]
  - Dysphagia [Unknown]
  - Arthralgia [Unknown]
  - Vomiting [Recovered/Resolved]
  - Muscle spasms [Unknown]
  - Incorrect dose administered [Unknown]
  - Pain [Unknown]
  - Ill-defined disorder [Unknown]
  - Pain in extremity [Unknown]
  - Depression [Unknown]
  - Headache [Unknown]
  - Abdominal discomfort [Unknown]
  - Dizziness [Unknown]
  - Peripheral swelling [Unknown]
  - Malaise [Unknown]
  - Diarrhoea [Unknown]
  - General physical health deterioration [Not Recovered/Not Resolved]
  - Hypertension [Unknown]
  - Ear pain [Unknown]
  - Back pain [Unknown]
  - Nausea [Unknown]
  - Disturbance in attention [Not Recovered/Not Resolved]

NARRATIVE: CASE EVENT DATE: 20140812
